FAERS Safety Report 8351388-0 (Version None)
Quarter: 2012Q2

REPORT INFORMATION
  Report Type: 
  Country: None (occurrence: None)
  Receive Date: 20120510
  Receipt Date: 20120503
  Transmission Date: 20120825
  Serious: Yes (Disabling, Other)
  Sender: FDA-Public Use
  Company Number: US-MERCK-1107USA01787

PATIENT
  Age: 59 Year
  Sex: Female
  Weight: 54 kg

DRUGS (4)
  1. VITAMINS (UNSPECIFIED) [Concomitant]
     Indication: ROUTINE HEALTH MAINTENANCE
     Route: 065
  2. VITAMIN D (UNSPECIFIED) [Concomitant]
     Indication: ROUTINE HEALTH MAINTENANCE
     Route: 065
  3. FOSAMAX [Suspect]
     Indication: OSTEOPOROSIS
     Route: 048
     Dates: start: 19990101, end: 20110501
  4. CALCIUM (UNSPECIFIED) [Concomitant]
     Indication: ROUTINE HEALTH MAINTENANCE
     Route: 065

REACTIONS (5)
  - PAIN IN EXTREMITY [None]
  - FEMUR FRACTURE [None]
  - GAIT DISTURBANCE [None]
  - FOOT FRACTURE [None]
  - FALL [None]
